FAERS Safety Report 13629885 (Version 1)
Quarter: 2017Q2

REPORT INFORMATION
  Report Type: Spontaneous
  Country: US (occurrence: US)
  Receive Date: 20170531
  Receipt Date: 20170531
  Transmission Date: 20170830
  Serious: No
  Sender: FDA-Public Use
  Company Number: US-ASTELLAS-1253999

PATIENT

DRUGS (5)
  1. TARCEVA [Suspect]
     Active Substance: ERLOTINIB HYDROCHLORIDE
     Indication: NON-SMALL CELL LUNG CANCER
     Route: 065
  2. CARAFATE [Concomitant]
     Active Substance: SUCRALFATE
  3. AVASTIN [Suspect]
     Active Substance: BEVACIZUMAB
     Indication: NON-SMALL CELL LUNG CANCER
     Route: 065
  4. CISPLATIN. [Concomitant]
     Active Substance: CISPLATIN
  5. ALIMTA [Concomitant]
     Active Substance: PEMETREXED DISODIUM

REACTIONS (3)
  - Tongue discomfort [Unknown]
  - Rash [Unknown]
  - Dyspepsia [Unknown]
